FAERS Safety Report 19376479 (Version 1)
Quarter: 2021Q2

REPORT INFORMATION
  Report Type: Spontaneous
  Country: NL (occurrence: NL)
  Receive Date: 20210604
  Receipt Date: 20210604
  Transmission Date: 20210717
  Serious: Yes (Life-Threatening, Hospitalization, Other)
  Sender: FDA-Public Use
  Company Number: NL-SA-2021SA185023

PATIENT
  Age: 71 Year
  Sex: Male
  Weight: 82.5 kg

DRUGS (4)
  1. ALGELDRAAT [Concomitant]
     Dosage: SUSPENSIE, 40/20 MG/ML (MILLIGRAM PER MILLILITER)
     Route: 065
  2. CAPECITABINE. [Suspect]
     Active Substance: CAPECITABINE
     Indication: RECTOSIGMOID CANCER METASTATIC
     Dosage: 2ND CYCLE CAPOX ON 01?04?2021
     Route: 065
     Dates: start: 20210312, end: 20210401
  3. OXALIPLATINE WINTHROP [Suspect]
     Active Substance: OXALIPLATIN
     Indication: RECTOSIGMOID CANCER METASTATIC
     Dosage: 2ND CYCLE CAPOX ON 01?04?2021
     Route: 065
     Dates: start: 20210312, end: 20210401
  4. MACROGOL [Concomitant]
     Active Substance: POLYETHYLENE GLYCOLS
     Dosage: UNK
     Route: 065

REACTIONS (1)
  - Pneumatosis intestinalis [Not Recovered/Not Resolved]

NARRATIVE: CASE EVENT DATE: 20210412
